FAERS Safety Report 5711483-9 (Version None)
Quarter: 2008Q2

REPORT INFORMATION
  Report Type: 
  Country: None (occurrence: None)
  Receive Date: 20080421
  Receipt Date: 20080411
  Transmission Date: 20081010
  Serious: Yes (Hospitalization, Other)
  Sender: FDA-Public Use
  Company Number: US-MERCK-0710USA03605

PATIENT
  Age: 45 Year
  Sex: Female
  Weight: 61 kg

DRUGS (4)
  1. FOSAMAX [Suspect]
     Indication: OSTEOPOROSIS PROPHYLAXIS
     Route: 048
     Dates: start: 19970101, end: 20060501
  2. FOSAMAX [Suspect]
     Route: 048
     Dates: start: 20080101
  3. PREDNISONE [Concomitant]
     Indication: SYSTEMIC LUPUS ERYTHEMATOSUS
     Route: 065
     Dates: start: 19790101, end: 20080101
  4. COUMADIN [Concomitant]
     Route: 065
     Dates: start: 19970101, end: 20080101

REACTIONS (23)
  - ABDOMINAL PAIN [None]
  - ADRENAL INSUFFICIENCY [None]
  - CELLULITIS [None]
  - CELLULITIS STREPTOCOCCAL [None]
  - CHEST PAIN [None]
  - CONJUNCTIVAL HAEMORRHAGE [None]
  - COUGH [None]
  - CUSHINGOID [None]
  - DIVERTICULUM [None]
  - EPISTAXIS [None]
  - GASTROINTESTINAL DISORDER [None]
  - HYPOTHYROIDISM [None]
  - INSOMNIA [None]
  - LUPUS PNEUMONITIS [None]
  - MASTICATION DISORDER [None]
  - MIGRAINE [None]
  - MOUTH ULCERATION [None]
  - NEUROPATHY PERIPHERAL [None]
  - OSTEONECROSIS [None]
  - PYREXIA [None]
  - SEPSIS SYNDROME [None]
  - SINUSITIS [None]
  - TEMPOROMANDIBULAR JOINT SYNDROME [None]
